FAERS Safety Report 15989688 (Version 3)
Quarter: 2019Q3

REPORT INFORMATION
  Report Type: Spontaneous
  Country: US (occurrence: US)
  Receive Date: 20190221
  Receipt Date: 20190821
  Transmission Date: 20191004
  Serious: No
  Sender: FDA-Public Use
  Company Number: US-PFIZER INC-2019078873

PATIENT
  Age: 80 Year
  Sex: Female
  Weight: 65.31 kg

DRUGS (1)
  1. LYRICA [Suspect]
     Active Substance: PREGABALIN
     Indication: RHEUMATOID ARTHRITIS
     Dosage: 75 MG, 2X/DAY[1 CAP PO BID (TWICE A DAY)]
     Route: 048

REACTIONS (4)
  - Off label use [Unknown]
  - Back pain [Unknown]
  - Feeling abnormal [Unknown]
  - Product use in unapproved indication [Unknown]
